FAERS Safety Report 6163687-1 (Version None)
Quarter: 2009Q2

REPORT INFORMATION
  Report Type: 
  Country: None (occurrence: None)
  Receive Date: 20090420
  Receipt Date: 20081024
  Transmission Date: 20091009
  Serious: Yes (Hospitalization)
  Sender: FDA-Public Use
  Company Number: SPV1-2008-02310

PATIENT
  Age: 16 Year
  Sex: Male
  Weight: 124.7 kg

DRUGS (1)
  1. LIALDA [Suspect]
     Indication: COLITIS ULCERATIVE
     Dosage: 4.8 G, 1X/DAY:QD, ORAL
     Route: 048
     Dates: start: 20080905

REACTIONS (3)
  - COLITIS ULCERATIVE [None]
  - DEPRESSION [None]
  - MEDICATION RESIDUE [None]
